FAERS Safety Report 19264517 (Version 1)
Quarter: 2021Q2

REPORT INFORMATION
  Report Type: Spontaneous
  Country: PT (occurrence: PT)
  Receive Date: 20210517
  Receipt Date: 20210517
  Transmission Date: 20210717
  Serious: Yes (Other)
  Sender: FDA-Public Use
  Company Number: PT-SUN PHARMACEUTICAL INDUSTRIES LTD-2021R1-296841

PATIENT
  Age: 55 Year
  Sex: Male

DRUGS (1)
  1. IMATINIB. [Suspect]
     Active Substance: IMATINIB MESYLATE
     Indication: CHEMOTHERAPY
     Dosage: 400 MILLIGRAM ID
     Route: 065

REACTIONS (3)
  - Shock [Unknown]
  - Rash [Unknown]
  - Hypoxia [Unknown]
